FAERS Safety Report 8827032 (Version 3)
Quarter: 2012Q4

REPORT INFORMATION
  Report Type: Report from Study
  Country: MX (occurrence: MX)
  Receive Date: 20121005
  Receipt Date: 20121031
  Transmission Date: 20130627
  Serious: Yes (Death, Life-Threatening, Hospitalization, Disabling)
  Sender: FDA-Public Use
  Company Number: MX-JNJFOC-20121002578

PATIENT
  Age: 67 Year
  Sex: Male

DRUGS (7)
  1. ABIRATERONE ACETATE [Suspect]
     Route: 048
  2. ABIRATERONE ACETATE [Suspect]
     Indication: PROSTATE CANCER METASTATIC
     Route: 048
     Dates: start: 20120124, end: 20120907
  3. PREDNISONE [Suspect]
     Indication: PROSTATE CANCER METASTATIC
     Route: 048
     Dates: start: 20120123, end: 20120906
  4. MORPHINE [Concomitant]
     Indication: PAIN
     Route: 048
     Dates: start: 20120710, end: 20120924
  5. MORPHINE SULPHATE [Concomitant]
     Route: 048
     Dates: start: 201007
  6. PHENYTOIN [Concomitant]
     Route: 048
     Dates: start: 201007
  7. DICLOFENAC [Concomitant]
     Route: 048
     Dates: start: 201007

REACTIONS (1)
  - Thrombocytopenia [Fatal]
